FAERS Safety Report 5585572-6 (Version None)
Quarter: 2008Q1

REPORT INFORMATION
  Report Type: 
  Country: None (occurrence: None)
  Receive Date: 20080109
  Receipt Date: 20080103
  Transmission Date: 20080703
  Serious: Yes (Other)
  Sender: FDA-Public Use
  Company Number: B0395407A

PATIENT
  Sex: Female

DRUGS (2)
  1. SEROXAT [Suspect]
     Indication: ANXIETY
     Dates: start: 19990725, end: 20030201
  2. DIAZEPAM [Concomitant]
     Dates: start: 20021226

REACTIONS (14)
  - AGORAPHOBIA [None]
  - ANXIETY [None]
  - CHLOASMA [None]
  - CLAUSTROPHOBIA [None]
  - DIZZINESS [None]
  - DRUG WITHDRAWAL SYNDROME [None]
  - FATIGUE [None]
  - HEADACHE [None]
  - IMMUNE SYSTEM DISORDER [None]
  - MEMORY IMPAIRMENT [None]
  - PANIC ATTACK [None]
  - PARANOIA [None]
  - STRESS [None]
  - SUICIDAL BEHAVIOUR [None]
